FAERS Safety Report 25382048 (Version 6)
Quarter: 2025Q4

REPORT INFORMATION
  Report Type: Report from Study
  Country: KR (occurrence: KR)
  Receive Date: 20250531
  Receipt Date: 20251113
  Transmission Date: 20260118
  Serious: Yes (Hospitalization)
  Sender: CELLTRION
  Company Number: KR-CELLTRION INC.-2024KR011536

PATIENT

DRUGS (42)
  1. BEVACIZUMAB-ADCD [Suspect]
     Active Substance: BEVACIZUMAB-ADCD
     Indication: Colorectal cancer metastatic
     Dosage: 57.6 KG 288 MG, Q2WEEKS
     Route: 042
     Dates: start: 20231104
  2. BEVACIZUMAB-ADCD [Suspect]
     Active Substance: BEVACIZUMAB-ADCD
     Dosage: 288 MG, Q2WEEKS
     Route: 042
     Dates: start: 20231104, end: 20240227
  3. BEVACIZUMAB-ADCD [Suspect]
     Active Substance: BEVACIZUMAB-ADCD
     Dosage: 58KG 290MG, Q2WEEKS
     Route: 042
     Dates: start: 20231121, end: 20240227
  4. BEVACIZUMAB-ADCD [Suspect]
     Active Substance: BEVACIZUMAB-ADCD
     Dosage: 61.2 KG 306MG, Q2WEEKS
     Route: 042
     Dates: start: 20240227, end: 20240227
  5. IRINOTECAN [Suspect]
     Active Substance: IRINOTECAN
     Indication: Colorectal cancer metastatic
     Dosage: UNK
     Dates: start: 20231104, end: 20240227
  6. FLUOROURACIL [Suspect]
     Active Substance: FLUOROURACIL
     Indication: Colorectal cancer metastatic
     Dosage: UNK
     Dates: start: 20231104, end: 20240228
  7. YUHAN DEXAMETHASONE DISODIUM PHOSPHATE [Concomitant]
     Indication: Prophylaxis of nausea and vomiting
     Dosage: 12 MG, QD
     Route: 042
     Dates: start: 20231104, end: 20240227
  8. ALOCTRON [Concomitant]
     Indication: Prophylaxis of nausea and vomiting
     Dosage: 5 ML, QD
     Route: 042
     Dates: start: 20231104, end: 20240227
  9. CREON 40000 [Concomitant]
     Indication: Post procedural complication
     Dosage: 400 MG, TID
     Route: 048
     Dates: start: 20230822, end: 20240310
  10. CREON 40000 [Concomitant]
     Indication: Prophylaxis
  11. HERBALS [Concomitant]
     Active Substance: HERBALS
     Indication: Post procedural complication
     Dosage: 30 MG, TID
     Route: 048
     Dates: start: 20230822, end: 20240310
  12. HERBALS [Concomitant]
     Active Substance: HERBALS
     Indication: Prophylaxis
  13. FOICHOL [Concomitant]
     Indication: Post procedural complication
     Dosage: 200 MG, TID
     Route: 048
     Dates: start: 20230822, end: 20240310
  14. FOICHOL [Concomitant]
     Indication: Prophylaxis
  15. DEXILANT [Concomitant]
     Active Substance: DEXLANSOPRAZOLE
     Indication: Prophylaxis against gastrointestinal ulcer
     Dosage: 30 MG, QD
     Route: 048
     Dates: start: 20230822, end: 20231123
  16. LIVACT [AMINO ACIDS NOS] [Concomitant]
     Indication: Post procedural complication
     Dosage: 1 PACK, TID
     Route: 048
     Dates: start: 2023, end: 20231204
  17. LIVACT [AMINO ACIDS NOS] [Concomitant]
     Indication: Prophylaxis
  18. ARGININ [ARGININE HYDROCHLORIDE] [Concomitant]
     Indication: Post procedural complication
     Dosage: 1 PACK, QD
     Route: 048
     Dates: start: 2023, end: 20231203
  19. ARGININ [ARGININE HYDROCHLORIDE] [Concomitant]
     Indication: Prophylaxis
  20. DAEWON MEGESTROL ES [Concomitant]
     Indication: Decreased appetite
     Dosage: 1 PACK, QD
     Route: 048
     Dates: start: 20230919
  21. DAEWON MEGESTROL ES [Concomitant]
     Indication: Prophylaxis
  22. FEDULOW [Concomitant]
     Indication: Blood iron increased
     Dosage: 1 PACK, BID
     Route: 048
     Dates: start: 20231121
  23. FEDULOW [Concomitant]
     Indication: Prophylaxis
  24. FEDULOW [Concomitant]
     Indication: Serum ferritin increased
  25. CEFTRIAXONE SODIUM [Concomitant]
     Active Substance: CEFTRIAXONE SODIUM
     Indication: Arthritis fungal
     Dosage: 2 G, QD
     Route: 042
     Dates: start: 20231205, end: 20231208
  26. FULLGRAM [CLINDAMYCIN HYDROCHLORIDE] [Concomitant]
     Indication: Arthritis fungal
     Dosage: 600 MG, BID
     Route: 042
     Dates: start: 20231205, end: 20231208
  27. FULLGRAM [CLINDAMYCIN HYDROCHLORIDE] [Concomitant]
     Dosage: 600 MG, BID
     Route: 042
     Dates: start: 20231212, end: 20231217
  28. RIFAMPIN [Concomitant]
     Active Substance: RIFAMPIN
     Indication: Arthritis fungal
     Dosage: 600 MG, QD
     Route: 048
     Dates: start: 20231207, end: 20231207
  29. PIPERACILLIN SODIUM\TAZOBACTAM SODIUM [Concomitant]
     Active Substance: PIPERACILLIN SODIUM\TAZOBACTAM SODIUM
     Indication: Arthritis fungal
     Dosage: 4.5 G, TID
     Route: 042
     Dates: start: 20231209, end: 20231211
  30. PANTOPRAZOLE SODIUM [Concomitant]
     Active Substance: PANTOPRAZOLE SODIUM
     Indication: Prophylaxis against gastrointestinal ulcer
     Dosage: 40 MG, QD
     Route: 042
     Dates: start: 20231211
  31. VFEND [Concomitant]
     Active Substance: VORICONAZOLE
     Indication: Arthritis fungal
     Dosage: 200 MG, BID
     Route: 042
     Dates: start: 20231212
  32. DIFLUCAN [Concomitant]
     Active Substance: FLUCONAZOLE
     Indication: Arthritis fungal
     Dosage: 100 MG, QD
     Route: 042
     Dates: start: 20231208, end: 20240326
  33. MAXIPIME [Concomitant]
     Active Substance: CEFEPIME HYDROCHLORIDE
     Indication: Arthritis fungal
     Dosage: 1 G, TID
     Route: 042
     Dates: start: 20231212, end: 20231217
  34. SYNERJET [Concomitant]
     Indication: Arthritis fungal
     Dosage: 325 MG, TID (325/37.5)
     Route: 048
     Dates: start: 20231211
  35. JEIL ATROPINE SULFATE [Concomitant]
     Indication: Prophylaxis
     Dosage: 0.5 MG, QD
     Route: 042
     Dates: start: 20231104, end: 20240227
  36. LEUCOVORIN CALCIUM [Concomitant]
     Active Substance: LEUCOVORIN CALCIUM
     Indication: Colorectal cancer metastatic
     Dosage: 100 MG, QD
     Route: 042
     Dates: start: 20231104, end: 20240227
  37. LEUCOVORIN CALCIUM [Concomitant]
     Active Substance: LEUCOVORIN CALCIUM
     Indication: Chemotherapy side effect prophylaxis
  38. NEXIUM I.V. [Concomitant]
     Active Substance: ESOMEPRAZOLE SODIUM
     Indication: Duodenal ulcer
     Dosage: 40 MG, QD
     Route: 042
     Dates: start: 20210317, end: 20240327
  39. LEUCOVORIN [Concomitant]
     Active Substance: LEUCOVORIN\LEUCOVORIN CALCIUM
     Indication: Prophylaxis
     Dosage: 4 ML, QD
     Route: 042
     Dates: start: 20220511
  40. SODIUM CHLORIDE [Concomitant]
     Active Substance: SODIUM CHLORIDE
     Indication: Acute kidney injury
     Dosage: 1000 ML, QD (BOTTLE)
     Route: 042
     Dates: start: 20240310, end: 20240314
  41. NEXIUM I.V. [Concomitant]
     Active Substance: ESOMEPRAZOLE SODIUM
     Indication: Duodenal ulcer
     Dosage: 40 MG, QD
     Route: 042
     Dates: start: 20231211, end: 20240106
  42. VANCO KIT [Concomitant]
     Indication: Arthritis fungal
     Dosage: 1 G, BID
     Route: 042
     Dates: start: 20240319

REACTIONS (1)
  - Acute kidney injury [Recovered/Resolved]

NARRATIVE: CASE EVENT DATE: 20240310
